FAERS Safety Report 6320407-5 (Version None)
Quarter: 2009Q3

REPORT INFORMATION
  Report Type: 
  Country: None (occurrence: None)
  Receive Date: 20090822
  Receipt Date: 20081104
  Transmission Date: 20100115
  Serious: No
  Sender: FDA-Public Use
  Company Number: US-ABBOTT-08P-163-0486034-00

PATIENT
  Sex: Female

DRUGS (4)
  1. NIASPAN [Suspect]
     Indication: LOW DENSITY LIPOPROTEIN INCREASED
     Dosage: STARTED 500 MG DAILY  WILL STOP AS OF TODAY... TOOK ONE DAY ONLY    LIPITOR
     Route: 048
     Dates: start: 20081104, end: 20081104
  2. NIASPAN [Suspect]
     Indication: HIGH DENSITY LIPOPROTEIN DECREASED
  3. ATORVASTATIN CALCIUM [Concomitant]
     Indication: HIGH DENSITY LIPOPROTEIN
  4. ASPIRIN [Concomitant]
     Indication: DRUG USE FOR UNKNOWN INDICATION

REACTIONS (2)
  - ABDOMINAL DISCOMFORT [None]
  - PERIPHERAL COLDNESS [None]
